FAERS Safety Report 12232000 (Version 2)
Quarter: 2016Q2

REPORT INFORMATION
  Report Type: Spontaneous
  Country: US (occurrence: US)
  Receive Date: 20160401
  Receipt Date: 20160510
  Transmission Date: 20160815
  Serious: Yes (Other)
  Sender: FDA-Public Use
  Company Number: US-ENDO PHARMACEUTICALS INC.-2016-002315

PATIENT
  Sex: Male

DRUGS (2)
  1. SOTALOL HYDROCHLORIDE TABLETS 80MG [Suspect]
     Active Substance: SOTALOL HYDROCHLORIDE
     Indication: HEART RATE ABNORMAL
     Route: 065
     Dates: start: 201507, end: 201508
  2. SOTALOL. [Suspect]
     Active Substance: SOTALOL
     Indication: HEART RATE ABNORMAL
     Route: 065
     Dates: start: 201507, end: 201508

REACTIONS (3)
  - Syncope [Unknown]
  - Diarrhoea [Recovering/Resolving]
  - Tachycardia [Unknown]

NARRATIVE: CASE EVENT DATE: 2015
